FAERS Safety Report 5942342-4 (Version None)
Quarter: 2008Q4

REPORT INFORMATION
  Report Type: 
  Country: None (occurrence: None)
  Receive Date: 20081103
  Receipt Date: 20081021
  Transmission Date: 20090506
  Serious: Yes (Other)
  Sender: FDA-Public Use
  Company Number: JPI-P-005228

PATIENT
  Age: 78 Year
  Sex: Female

DRUGS (7)
  1. LUVOX IR (FLUVOXAMINE MALEATE) (TABLETS) (FLUVOXAMINE MALEATE) (TABLET [Suspect]
     Indication: DEPRESSIVE SYMPTOM
     Dosage: (25 MG, 1 D), ORAL
     Route: 048
     Dates: start: 20060113
  2. BERAPROST SODIUM (BERAPROST SODIUM) [Suspect]
     Indication: DRUG USE FOR UNKNOWN INDICATION
     Dosage: (80 MG, 1 D), ORAL
     Route: 048
     Dates: start: 20020204, end: 20081021
  3. FLUVASTATIN SODIUM [Suspect]
     Indication: DRUG USE FOR UNKNOWN INDICATION
     Dosage: (30 MG, 1 D), ORAL
     Route: 048
     Dates: start: 20020204
  4. SODIUM RISEDRONATE HYDRATE (RISEDRONATE SODIUM) [Concomitant]
  5. PROPIVERINE HYDROCHLORIDE (PROPIVERINE HYDROCHLORIDE) [Concomitant]
  6. FENOFIBRATE [Concomitant]
  7. ACETYLSALICYLIC ACID SRT [Concomitant]

REACTIONS (1)
  - INTERSTITIAL LUNG DISEASE [None]
